FAERS Safety Report 5592744-3 (Version None)
Quarter: 2008Q1

REPORT INFORMATION
  Report Type: 
  Country: None (occurrence: None)
  Receive Date: 20080116
  Receipt Date: 20080114
  Transmission Date: 20080703
  Serious: Yes (Hospitalization)
  Sender: FDA-Public Use
  Company Number: GB-BAYER-200810009BNE

PATIENT
  Age: 56 Year
  Sex: Female

DRUGS (3)
  1. ADALAT [Suspect]
     Indication: DRUG USE FOR UNKNOWN INDICATION
     Dosage: TOTAL DAILY DOSE: 60 MG
     Route: 048
     Dates: start: 20071220, end: 20071221
  2. HALOPERIDOL [Concomitant]
  3. PROCYCLIDINE HYDROCHLORIDE 2MG TAB [Concomitant]

REACTIONS (6)
  - ANXIETY [None]
  - CONFUSIONAL STATE [None]
  - FEELING COLD [None]
  - PAIN IN EXTREMITY [None]
  - TACHYCARDIA [None]
  - THIRST [None]
